FAERS Safety Report 7885023-2 (Version None)
Quarter: 2011Q4

REPORT INFORMATION
  Report Type: 
  Country: None (occurrence: None)
  Receive Date: 20111102
  Receipt Date: 20111031
  Transmission Date: 20120403
  Serious: Yes (Life-Threatening, Hospitalization)
  Sender: FDA-Public Use
  Company Number: ES-ABBOTT-11P-144-0868284-00

PATIENT
  Age: 48 Year
  Sex: Male

DRUGS (2)
  1. HUMIRA [Suspect]
     Indication: PSORIASIS
     Route: 058
     Dates: start: 20110201
  2. METAMIZOL [Concomitant]
     Indication: BILIARY COLIC

REACTIONS (2)
  - NEUTROPENIA [None]
  - ACUTE MYELOID LEUKAEMIA [None]
